FAERS Safety Report 21145036 (Version 2)
Quarter: 2022Q3

REPORT INFORMATION
  Report Type: Spontaneous
  Country: US (occurrence: US)
  Receive Date: 20220729
  Receipt Date: 20220805
  Transmission Date: 20221026
  Serious: Yes (Life-Threatening, Hospitalization, Other)
  Sender: FDA-Public Use
  Company Number: US-MLMSERVICE-20220715-3676291-1

PATIENT
  Age: 19 Year
  Sex: Female

DRUGS (2)
  1. BUPIVACAINE [Suspect]
     Active Substance: BUPIVACAINE
     Dosage: 1.6 ML, HYPERBARIC
     Route: 065
  2. OXYTOCIN [Suspect]
     Active Substance: OXYTOCIN
     Dosage: UNK
     Route: 065

REACTIONS (10)
  - Therapeutic product effect increased [Recovered/Resolved]
  - Hypotension [Recovered/Resolved]
  - Hypoxia [Recovered/Resolved]
  - Nausea [Unknown]
  - Vomiting [Recovered/Resolved]
  - Distributive shock [Recovered/Resolved]
  - Lung infiltration [Recovered/Resolved]
  - Incorrect dose administered [Recovered/Resolved]
  - Sinus tachycardia [Recovered/Resolved]
  - Exposure during pregnancy [Unknown]
